FAERS Safety Report 18761574 (Version 1)
Quarter: 2021Q1

REPORT INFORMATION
  Report Type: Report from Study
  Country: IT (occurrence: IT)
  Receive Date: 20210120
  Receipt Date: 20210120
  Transmission Date: 20210419
  Serious: Yes (Other)
  Sender: FDA-Public Use
  Company Number: IT-ACCORD-212803

PATIENT
  Age: 89 Year
  Sex: Male

DRUGS (9)
  1. DIBASE [Concomitant]
     Active Substance: CHOLECALCIFEROL
  2. FUROSEMIDE. [Concomitant]
     Active Substance: FUROSEMIDE
  3. NORVASC [Concomitant]
     Active Substance: AMLODIPINE BESYLATE
  4. QUETIAPINE. [Suspect]
     Active Substance: QUETIAPINE
     Indication: SENILE DEMENTIA
     Route: 048
     Dates: end: 20201204
  5. TRIATEC [Concomitant]
     Dosage: STRENGHT:10MG
  6. TRITTICO [Concomitant]
     Active Substance: TRAZODONE HYDROCHLORIDE
     Dosage: STRENGTH60 MG /ML
  7. ELIQUIS [Concomitant]
     Active Substance: APIXABAN
  8. CLOTIAPINE [Concomitant]
     Active Substance: CLOTHIAPINE
  9. DOBETIN [Concomitant]

REACTIONS (2)
  - Medication error [Unknown]
  - Sopor [Recovering/Resolving]

NARRATIVE: CASE EVENT DATE: 20201204
